FAERS Safety Report 25085478 (Version 2)
Quarter: 2025Q3

REPORT INFORMATION
  Report Type: Spontaneous
  Country: US (occurrence: US)
  Receive Date: 20250317
  Receipt Date: 20250803
  Transmission Date: 20251020
  Serious: Yes (Hospitalization, Other)
  Sender: ALEXION PHARMACEUTICALS
  Company Number: US-AstraZeneca-CH-00823946AP

PATIENT
  Sex: Male

DRUGS (1)
  1. BREZTRI [Suspect]
     Active Substance: BUDESONIDE\FORMOTEROL\GLYCOPYRROLATE
     Route: 065

REACTIONS (11)
  - Pneumonia [Unknown]
  - Fall [Unknown]
  - Limb injury [Unknown]
  - Lip injury [Unknown]
  - Contusion [Unknown]
  - Head injury [Unknown]
  - Influenza [Unknown]
  - Wrong technique in product usage process [Unknown]
  - Product dose omission issue [Unknown]
  - Device delivery system issue [Unknown]
  - Product communication issue [Unknown]
